FAERS Safety Report 7107935-X (Version None)
Quarter: 2010Q4

REPORT INFORMATION
  Report Type: 
  Country: None (occurrence: None)
  Receive Date: 20101117
  Receipt Date: 20101108
  Transmission Date: 20110411
  Serious: Yes (Hospitalization)
  Sender: FDA-Public Use
  Company Number: SE-ASTRAZENECA-2010SE53277

PATIENT
  Age: 93 Year
  Sex: Male

DRUGS (2)
  1. ATACAND [Suspect]
     Route: 048
     Dates: start: 20100410, end: 20100416
  2. SPIRONOLAKTON NYCOMED [Concomitant]

REACTIONS (1)
  - MYOSITIS [None]
